FAERS Safety Report 9405338 (Version 1)
Quarter: 2013Q3

REPORT INFORMATION
  Report Type: Report from Study
  Country: US (occurrence: US)
  Receive Date: 20130717
  Receipt Date: 20130717
  Transmission Date: 20140515
  Serious: Yes (Other)
  Sender: FDA-Public Use
  Company Number: US-MERCK-1307FRA002314

PATIENT
  Sex: 0

DRUGS (2)
  1. REBETOL [Suspect]
     Indication: HEPATITIS C
     Dosage: 1000 MG FOR BODY WEIGHT LESS THAN 75 KG, 1200 MG FOR BODY WEIGHT GREATERTHAN 75KG, IN 2 DIVIDED DOS
     Route: 048
  2. PEGASYS [Suspect]
     Dosage: 180 MICROGRAM, QW
     Route: 058

REACTIONS (3)
  - Prinzmetal angina [Unknown]
  - Lymphopenia [Unknown]
  - Syncope [Unknown]
